FAERS Safety Report 19762089 (Version 1)
Quarter: 2021Q3

REPORT INFORMATION
  Report Type: Other
  Country: IT (occurrence: IT)
  Receive Date: 20210830
  Receipt Date: 20210830
  Transmission Date: 20211014
  Serious: Yes (Other)
  Sender: FDA-Public Use
  Company Number: IT-ROCHE-2896573

PATIENT

DRUGS (4)
  1. CLONAZEPAM. [Suspect]
     Active Substance: CLONAZEPAM
     Indication: PRODUCT USED FOR UNKNOWN INDICATION
     Route: 065
  2. VALPROIC ACID. [Suspect]
     Active Substance: VALPROIC ACID
     Indication: PRODUCT USED FOR UNKNOWN INDICATION
     Route: 065
  3. PREGABALIN. [Suspect]
     Active Substance: PREGABALIN
     Indication: PRODUCT USED FOR UNKNOWN INDICATION
     Route: 065
  4. GABAPENTIN. [Suspect]
     Active Substance: GABAPENTIN
     Indication: PRODUCT USED FOR UNKNOWN INDICATION
     Route: 065

REACTIONS (12)
  - Gastrointestinal disorder [Unknown]
  - Pancreatitis [Unknown]
  - Nervous system disorder [Unknown]
  - Mental disorder [Unknown]
  - Laboratory test abnormal [Unknown]
  - Skin disorder [Unknown]
  - Metabolic disorder [Unknown]
  - Cardiovascular disorder [Unknown]
  - Fracture [Unknown]
  - Fall [Unknown]
  - Malnutrition [Unknown]
  - Visual impairment [Unknown]
